FAERS Safety Report 19627638 (Version 1)
Quarter: 2021Q3

REPORT INFORMATION
  Report Type: Spontaneous
  Country: US (occurrence: US)
  Receive Date: 20210729
  Receipt Date: 20210729
  Transmission Date: 20211014
  Serious: Yes (Hospitalization)
  Sender: FDA-Public Use
  Company Number: None

PATIENT
  Sex: Female

DRUGS (6)
  1. SUTENT [Suspect]
     Active Substance: SUNITINIB MALATE
     Indication: RENAL CANCER
     Dosage: 1 CAP QDX4WK PO 2WK OFF OF 6WK
     Route: 048
     Dates: start: 20210513
  2. OMEPRAZOLE. [Concomitant]
     Active Substance: OMEPRAZOLE
  3. CELECOXIB. [Concomitant]
     Active Substance: CELECOXIB
  4. VITAMIN D [Concomitant]
     Active Substance: VITAMIN D NOS
  5. ASPIRIN EC [Concomitant]
     Active Substance: ASPIRIN
  6. LINZESS [Concomitant]
     Active Substance: LINACLOTIDE

REACTIONS (1)
  - Therapy change [None]
